FAERS Safety Report 9196001 (Version 3)
Quarter: 2013Q4

REPORT INFORMATION
  Report Type: Spontaneous
  Country: US (occurrence: None)
  Receive Date: 20120703
  Receipt Date: 20131226
  Transmission Date: 20140711
  Serious: Yes (Other)
  Sender: FDA-Public Use
  Company Number: PHEH2012US005611

PATIENT
  Age: 39 Year
  Sex: Male
  Weight: 72.6 kg

DRUGS (2)
  1. GILENYA [Suspect]
     Route: 048
  2. LEXAPRO (ESCITALOPRAM OXALATE) TABLET [Concomitant]

REACTIONS (5)
  - Rash [None]
  - Ocular hyperaemia [None]
  - Dry eye [None]
  - Eye pruritus [None]
  - Eye irritation [None]
